FAERS Safety Report 6738500-1 (Version None)
Quarter: 2010Q2

REPORT INFORMATION
  Report Type: 
  Country: None (occurrence: None)
  Receive Date: 20100524
  Receipt Date: 20100519
  Transmission Date: 20101027
  Serious: Yes (Death, Life-Threatening, Other)
  Sender: FDA-Public Use
  Company Number: PHHY2010JP32692

PATIENT
  Age: 49 Year
  Sex: Male

DRUGS (3)
  1. RASILEZ [Suspect]
     Indication: HYPERTENSION
     Dosage: UNK
     Route: 048
  2. ASPIRIN [Suspect]
     Dosage: 100 MG DAILY DOSE
     Route: 048
     Dates: start: 20100201
  3. DORNER [Suspect]
     Dosage: 120 MG DAILY DOSE
     Route: 048
     Dates: start: 20100201

REACTIONS (3)
  - BLOOD PRESSURE INADEQUATELY CONTROLLED [None]
  - CEREBRAL HAEMORRHAGE [None]
  - HYPERTENSION [None]
